FAERS Safety Report 21624946 (Version 1)
Quarter: 2022Q4

REPORT INFORMATION
  Report Type: Spontaneous
  Country: DE (occurrence: DE)
  Receive Date: 20221122
  Receipt Date: 20221122
  Transmission Date: 20230113
  Serious: Yes (Other)
  Sender: FDA-Public Use
  Company Number: None

PATIENT
  Age: 56 Year
  Sex: Male
  Weight: 82 kg

DRUGS (2)
  1. HARVONI [Suspect]
     Active Substance: LEDIPASVIR\SOFOSBUVIR
     Indication: Hepatitis C
     Dosage: 90MG/DIE HARVONI
     Route: 048
     Dates: start: 20150701, end: 20150923
  2. RIBAVIRIN [Suspect]
     Active Substance: RIBAVIRIN
     Indication: Hepatitis C
     Dosage: 1200MG/DIE RIBAVIRIN
     Route: 048
     Dates: start: 20150701, end: 20150923

REACTIONS (4)
  - Cardioversion [Unknown]
  - Umbilical hernia [Unknown]
  - Cardiac valve disease [Unknown]
  - Scar [Unknown]

NARRATIVE: CASE EVENT DATE: 20211105
